FAERS Safety Report 15676511 (Version 1)
Quarter: 2018Q4

REPORT INFORMATION
  Report Type: Spontaneous
  Country: CA (occurrence: CA)
  Receive Date: 20181130
  Receipt Date: 20181130
  Transmission Date: 20190205
  Serious: Yes (Other)
  Sender: FDA-Public Use
  Company Number: CA-MYLANLABS-2018M1087550

PATIENT
  Sex: Male

DRUGS (1)
  1. MYLAN-NITRO PATCH 0.8 [Suspect]
     Active Substance: NITROGLYCERIN
     Indication: ANGINA PECTORIS

REACTIONS (2)
  - Angina pectoris [Unknown]
  - Drug ineffective [Unknown]
